FAERS Safety Report 5810969-6 (Version None)
Quarter: 2008Q3

REPORT INFORMATION
  Report Type: 
  Country: None (occurrence: None)
  Receive Date: 20080716
  Receipt Date: 20080714
  Transmission Date: 20090109
  Serious: Yes (Life-Threatening, Hospitalization, Disabling)
  Sender: FDA-Public Use
  Company Number: PHHO2004CO03824

PATIENT
  Sex: Female
  Weight: 50 kg

DRUGS (3)
  1. VALSARTAN + HCTZ T32564+CAPS [Suspect]
     Indication: HYPERTENSION
     Dosage: 160MG VALSARTAN / 25MG HCTZ QD
     Route: 048
     Dates: start: 20030930, end: 20040311
  2. SOMESE [Concomitant]
     Indication: INSOMNIA
     Dosage: .25 MG, QD
     Route: 048
     Dates: start: 20030201, end: 20040311
  3. XANAX [Concomitant]
     Indication: INSOMNIA
     Dosage: .25 MG, QD
     Route: 048
     Dates: start: 20030201, end: 20040307

REACTIONS (7)
  - DEPRESSION [None]
  - DISORIENTATION [None]
  - DIZZINESS [None]
  - HYPOKALAEMIA [None]
  - HYPONATRAEMIA [None]
  - SOMNOLENCE [None]
  - VOMITING [None]
